FAERS Safety Report 11448169 (Version 1)
Quarter: 2015Q3

REPORT INFORMATION
  Report Type: Spontaneous
  Country: US (occurrence: US)
  Receive Date: 20150902
  Receipt Date: 20150902
  Transmission Date: 20151125
  Serious: No
  Sender: FDA-Public Use
  Company Number: US-ELI_LILLY_AND_COMPANY-US201508002280

PATIENT
  Sex: Female
  Weight: 65.76 kg

DRUGS (16)
  1. MECLIZINE [Concomitant]
     Active Substance: MECLIZINE\MECLIZINE HYDROCHLORIDE
     Dosage: 2.5 MG, 3/W
     Route: 048
     Dates: start: 20150521
  2. TRACLEER [Concomitant]
     Active Substance: BOSENTAN
     Dosage: 125 MG, BID
     Route: 048
     Dates: start: 20150311
  3. IPRATROPIUM [Concomitant]
     Active Substance: IPRATROPIUM
     Dosage: 2 DF, TID
     Route: 045
     Dates: start: 20150311
  4. FUROSEMIDE. [Concomitant]
     Active Substance: FUROSEMIDE
     Dosage: 40 MG, QD
     Route: 048
     Dates: start: 20150622
  5. LANSOPRAZOLE. [Concomitant]
     Active Substance: LANSOPRAZOLE
     Dosage: 30 MG, QD
     Route: 048
     Dates: start: 20150205
  6. ADCIRCA [Suspect]
     Active Substance: TADALAFIL
     Indication: PRODUCT USED FOR UNKNOWN INDICATION
     Dosage: 20 MG, QD
     Route: 048
     Dates: start: 20150311
  7. LIDODERM [Concomitant]
     Active Substance: LIDOCAINE
     Dosage: 700 MG, PRN
     Dates: start: 20150311
  8. REMODULIN [Suspect]
     Active Substance: TREPROSTINIL
     Indication: PULMONARY HYPERTENSION
     Dosage: 0.028 ?G/KG, UNKNOWN
     Route: 042
     Dates: start: 20090513
  9. SPIRONOLACTONE. [Concomitant]
     Active Substance: SPIRONOLACTONE
     Dosage: 50 MG, QD
     Route: 048
     Dates: start: 20150520
  10. ATORVASTATIN [Concomitant]
     Active Substance: ATORVASTATIN
     Dosage: 10 MG, QD
     Route: 048
     Dates: start: 20150311
  11. DIGOX                              /00017701/ [Concomitant]
     Dosage: 125 MG, QD
     Route: 048
     Dates: start: 20150225
  12. FLONASE                            /00908302/ [Concomitant]
     Active Substance: MOMETASONE FUROATE
     Dosage: 2 DF, QD
     Route: 045
     Dates: start: 20150311
  13. BUMEX [Concomitant]
     Active Substance: BUMETANIDE
     Indication: HYPOKALAEMIA
     Dosage: UNK, UNKNOWN
     Route: 048
     Dates: start: 20150311
  14. CARTIA XT [Concomitant]
     Active Substance: DILTIAZEM HYDROCHLORIDE
     Dosage: 240 MG, QD
     Route: 048
     Dates: start: 20150521
  15. FAMOTIDINE. [Concomitant]
     Active Substance: FAMOTIDINE
     Dosage: 20 MG, QD
     Route: 048
  16. POTASSIUM CHLORIDE. [Concomitant]
     Active Substance: POTASSIUM CHLORIDE
     Dosage: 120 MEQ, BID
     Route: 048
     Dates: start: 20150311

REACTIONS (4)
  - Dizziness [Unknown]
  - Palpitations [Unknown]
  - Pain [Recovered/Resolved]
  - Back pain [Unknown]
